FAERS Safety Report 7921288-6 (Version None)
Quarter: 2011Q4

REPORT INFORMATION
  Report Type: 
  Country: None (occurrence: None)
  Receive Date: 20111117
  Receipt Date: 20111111
  Transmission Date: 20120403
  Serious: Yes (Death, Other)
  Sender: FDA-Public Use
  Company Number: IT-CELGENEUS-083-21880-11072461

PATIENT
  Sex: Female

DRUGS (3)
  1. REVLIMID [Suspect]
     Route: 048
     Dates: start: 20110609
  2. ENOXAPARIN SODIUM [Concomitant]
     Route: 058
     Dates: start: 20110404, end: 20110530
  3. REVLIMID [Suspect]
     Indication: MULTIPLE MYELOMA
     Route: 048
     Dates: start: 20110404, end: 20110421

REACTIONS (3)
  - MULTIPLE MYELOMA [None]
  - PANCYTOPENIA [None]
  - DEEP VEIN THROMBOSIS [None]
